FAERS Safety Report 9916152 (Version 1)
Quarter: 2014Q1

REPORT INFORMATION
  Report Type: Spontaneous
  Country: US (occurrence: None)
  Receive Date: 20140220
  Receipt Date: 20140220
  Transmission Date: 20141002
  Serious: No
  Sender: FDA-Public Use
  Company Number: None

PATIENT
  Age: 39 Year
  Sex: Female
  Weight: 81.65 kg

DRUGS (1)
  1. ROHTO COOL [Suspect]
     Indication: ASTHENOPIA

REACTIONS (3)
  - Burning sensation [None]
  - Pruritus [None]
  - Erythema [None]
